FAERS Safety Report 6034487-8 (Version None)
Quarter: 2009Q1

REPORT INFORMATION
  Report Type: 
  Country: None (occurrence: None)
  Receive Date: 20090109
  Receipt Date: 20090109
  Transmission Date: 20090719
  Serious: No
  Sender: FDA-Public Use
  Company Number: None

PATIENT
  Sex: Male

DRUGS (3)
  1. ZOMETA [Suspect]
     Indication: MULTIPLE MYELOMA
     Dosage: 4 MG MONTHLY IV
     Route: 042
     Dates: start: 20010101, end: 20050101
  2. ALKERAN [Concomitant]
  3. LISINOPRIL [Concomitant]

REACTIONS (2)
  - JAW DISORDER [None]
  - ORAL DISCHARGE [None]
